FAERS Safety Report 12445629 (Version 1)
Quarter: 2016Q2

REPORT INFORMATION
  Report Type: Spontaneous
  Country: US (occurrence: US)
  Receive Date: 20160608
  Receipt Date: 20160608
  Transmission Date: 20160815
  Serious: No
  Sender: FDA-Public Use
  Company Number: US-JNJFOC-20160505034

PATIENT
  Age: 37 Year
  Sex: Female
  Weight: 56.25 kg

DRUGS (2)
  1. AMOXICILLIN. [Concomitant]
     Active Substance: AMOXICILLIN
     Indication: URINARY TRACT INFECTION
     Dosage: 5 DAYS
     Route: 065
     Dates: start: 20160430
  2. TYLENOL REGULAR STRENGTH [Suspect]
     Active Substance: ACETAMINOPHEN
     Indication: HEADACHE
     Dosage: 2 LIQUID GELS, ONCE
     Route: 048
     Dates: start: 20160503, end: 20160503

REACTIONS (3)
  - Oropharyngeal pain [Recovering/Resolving]
  - Product size issue [Unknown]
  - Foreign body [Recovering/Resolving]

NARRATIVE: CASE EVENT DATE: 20160503
